FAERS Safety Report 9638991 (Version 1)
Quarter: 2013Q4

REPORT INFORMATION
  Report Type: Spontaneous
  Country: IN (occurrence: None)
  Receive Date: 20131018
  Receipt Date: 20131018
  Transmission Date: 20140711
  Serious: Yes (Other)
  Sender: FDA-Public Use
  Company Number: 2013P1020081

PATIENT
  Age: 62 Year
  Sex: Male

DRUGS (1)
  1. EPINEPHRINE [Suspect]
     Indication: ANAPHYLACTIC REACTION
     Dosage: 1 MG;X1;IM
     Route: 030

REACTIONS (2)
  - Acute myocardial infarction [None]
  - Coronary artery thrombosis [None]
